FAERS Safety Report 15138239 (Version 1)
Quarter: 2018Q3

REPORT INFORMATION
  Report Type: Spontaneous
  Country: DE (occurrence: DE)
  Receive Date: 20180713
  Receipt Date: 20180713
  Transmission Date: 20181010
  Serious: Yes (Other)
  Sender: FDA-Public Use
  Company Number: DE-DRREDDYS-GER/GER/18/0101674

PATIENT
  Age: 1 Day
  Sex: Male
  Weight: 4.04 kg

DRUGS (4)
  1. QUETIAPINE. [Suspect]
     Active Substance: QUETIAPINE
     Indication: OBSESSIVE-COMPULSIVE DISORDER
     Dosage: 150 [MG/D]
     Route: 064
     Dates: start: 20161118, end: 20170810
  2. LEVOTHYROXINE SODIUM. [Concomitant]
     Active Substance: LEVOTHYROXINE SODIUM
     Indication: HYPOTHYROIDISM
     Dosage: 50 [MCG/D]
     Route: 064
     Dates: start: 20161118, end: 20170810
  3. ELEVIT GYNVITAL (NEM) [Concomitant]
     Indication: PROPHYLAXIS OF NEURAL TUBE DEFECT
     Dosage: 0.4 [MG/D], 0. ? 37.6. GESTATIONAL WEEK
     Route: 064
     Dates: start: 20161118, end: 20170810
  4. SERTRALINE [Suspect]
     Active Substance: SERTRALINE HYDROCHLORIDE
     Indication: DEPRESSION
     Dosage: 0. ? 37.6. GESTATIONAL WEEK, 200 [MG/D]
     Route: 064
     Dates: start: 20161118, end: 20170810

REACTIONS (3)
  - Foetal exposure during pregnancy [Unknown]
  - Large for dates baby [Unknown]
  - Drug withdrawal syndrome neonatal [Recovered/Resolved]

NARRATIVE: CASE EVENT DATE: 20170810
